FAERS Safety Report 24152068 (Version 5)
Quarter: 2025Q1

REPORT INFORMATION
  Report Type: Spontaneous
  Country: US (occurrence: US)
  Receive Date: 20240730
  Receipt Date: 20250205
  Transmission Date: 20250408
  Serious: Yes (Hospitalization)
  Sender: PFIZER
  Company Number: US-SEATTLE GENETICS-2024SGN03027

PATIENT
  Age: 72 Year
  Sex: Female

DRUGS (2)
  1. TUKYSA [Suspect]
     Active Substance: TUCATINIB
     Indication: Breast cancer female
  2. TUKYSA [Suspect]
     Active Substance: TUCATINIB
     Dosage: 5 TABLETS TWICE DAILY/ 5 TABLETS TWICE A DAY

REACTIONS (4)
  - Vocal cord disorder [Unknown]
  - Dyspnoea [Unknown]
  - Nervousness [Unknown]
  - Off label use [Unknown]
